FAERS Safety Report 23521930 (Version 2)
Quarter: 2024Q1

REPORT INFORMATION
  Report Type: Other
  Country: US (occurrence: None)
  Receive Date: 20240214
  Receipt Date: 20240216
  Transmission Date: 20240409
  Serious: Yes (Other)
  Sender: FDA-Public Use
  Company Number: US-ROCHE-3507300

PATIENT
  Age: 60 Year
  Sex: Male

DRUGS (5)
  1. RITUXAN [Suspect]
     Active Substance: RITUXIMAB
     Indication: Product used for unknown indication
     Route: 065
  2. ACETAMINOPHEN [Concomitant]
     Active Substance: ACETAMINOPHEN
  3. AMJEVITA [Concomitant]
     Active Substance: ADALIMUMAB-ATTO
  4. HYDROCODONE [Concomitant]
     Active Substance: HYDROCODONE
  5. TRAMADOL [Concomitant]
     Active Substance: TRAMADOL\TRAMADOL HYDROCHLORIDE

REACTIONS (9)
  - Chronic myeloid leukaemia [Unknown]
  - Cardiac failure congestive [Unknown]
  - Nephropathy [Unknown]
  - Hyperlipidaemia [Unknown]
  - Hepatic cirrhosis [Unknown]
  - Hypertension [Unknown]
  - Pain in extremity [Unknown]
  - Musculoskeletal stiffness [Unknown]
  - Drug hypersensitivity [Unknown]
